FAERS Safety Report 23885606 (Version 1)
Quarter: 2024Q2

REPORT INFORMATION
  Report Type: Spontaneous
  Country: PT (occurrence: PT)
  Receive Date: 20240522
  Receipt Date: 20240522
  Transmission Date: 20240716
  Serious: Yes (Other)
  Sender: FDA-Public Use
  Company Number: PT-009507513-2405PRT001639

PATIENT
  Sex: Male

DRUGS (8)
  1. GEMCITABINE [Suspect]
     Active Substance: GEMCITABINE
     Indication: Bladder cancer
     Dosage: 1000 MILLIGRAM/SQ. METER, CYCLE, D1-D8
     Route: 065
     Dates: start: 20150330, end: 20150623
  2. CISPLATIN [Suspect]
     Active Substance: CISPLATIN
     Indication: Bladder cancer
     Dosage: 70 MILLIGRAM/SQ. METER, CYCLE, D1
     Route: 065
     Dates: start: 20150330, end: 20150623
  3. PACLITAXEL [Suspect]
     Active Substance: PACLITAXEL
     Indication: Bladder cancer
     Dosage: 80 MILLIGRAM/SQ. METER, QW
     Route: 065
     Dates: start: 20151021, end: 20160211
  4. BCG VACCINE [Suspect]
     Active Substance: BCG VACCINE
     Indication: Bladder cancer
     Dosage: UNK
     Route: 065
  5. PALEXIA [Concomitant]
     Active Substance: TAPENTADOL HYDROCHLORIDE
     Dosage: 200 MILLIGRAM, QD, 100 MILLIGRAM, BID
     Route: 048
  6. METAMIZOLE [Concomitant]
     Active Substance: METAMIZOLE
     Dosage: 575 MILLIGRAM, QD, PRN
     Route: 048
  7. CLONAZEPAM [Concomitant]
     Active Substance: CLONAZEPAM
     Dosage: 0.5 MILLIGRAM, QD
     Route: 048
  8. AMLODIPINE\PERINDOPRIL [Concomitant]
     Active Substance: AMLODIPINE\PERINDOPRIL
     Dosage: 8+5 MG, QD
     Route: 065

REACTIONS (8)
  - Metastases to bone [Unknown]
  - Metastases to prostate [Unknown]
  - Metastases to lymph nodes [Unknown]
  - Metastatic carcinoma of the bladder [Unknown]
  - Thrombocytopenia [Unknown]
  - Bone pain [Unknown]
  - Paraesthesia [Unknown]
  - Anaemia [Unknown]

NARRATIVE: CASE EVENT DATE: 20150801
